FAERS Safety Report 7033665-9 (Version None)
Quarter: 2010Q4

REPORT INFORMATION
  Report Type: 
  Country: None (occurrence: None)
  Receive Date: 20101005
  Receipt Date: 20100922
  Transmission Date: 20110411
  Serious: Yes (Hospitalization)
  Sender: FDA-Public Use
  Company Number: 015156

PATIENT
  Sex: Male

DRUGS (1)
  1. CIMZIA [Suspect]
     Dosage: (SUBCUTANEOUS)
     Route: 058
     Dates: start: 20100115, end: 20100903

REACTIONS (5)
  - BLISTER [None]
  - PULMONARY THROMBOSIS [None]
  - RENAL DISORDER [None]
  - RESPIRATORY DISTRESS [None]
  - THROMBOSIS [None]
